FAERS Safety Report 5934162-1 (Version None)
Quarter: 2008Q4

REPORT INFORMATION
  Report Type: 
  Country: None (occurrence: None)
  Receive Date: 20081029
  Receipt Date: 20081024
  Transmission Date: 20090506
  Serious: Yes (Hospitalization)
  Sender: FDA-Public Use
  Company Number: B0489438A

PATIENT
  Age: 61 Year
  Sex: Male
  Weight: 102 kg

DRUGS (2)
  1. AVANDAMET [Suspect]
     Dosage: 8MG PER DAY
     Route: 048
     Dates: start: 20050324, end: 20070914
  2. GLUCOPHAGE [Concomitant]
     Dates: start: 20050214, end: 20060920

REACTIONS (2)
  - EXTREMITY NECROSIS [None]
  - FEMORAL ARTERY OCCLUSION [None]
